FAERS Safety Report 21952193 (Version 3)
Quarter: 2023Q1

REPORT INFORMATION
  Report Type: Spontaneous
  Country: CA (occurrence: CA)
  Receive Date: 20230203
  Receipt Date: 20230302
  Transmission Date: 20230418
  Serious: No
  Sender: FDA-Public Use
  Company Number: CA-PFIZER INC-202300036096

PATIENT
  Age: 72 Year
  Sex: Female

DRUGS (1)
  1. FRAGMIN [Suspect]
     Active Substance: DALTEPARIN SODIUM
     Indication: Phlebitis superficial
     Dosage: 10000 IU

REACTIONS (1)
  - Device deployment issue [Unknown]
